FAERS Safety Report 8088517-2 (Version None)
Quarter: 2012Q1

REPORT INFORMATION
  Report Type: 
  Country: None (occurrence: None)
  Receive Date: 20120128
  Receipt Date: 20110415
  Transmission Date: 20120608
  Serious: Yes (Hospitalization)
  Sender: FDA-Public Use
  Company Number: US-ABBOTT-11P-163-0719948-00

PATIENT
  Sex: Female
  Weight: 113.5 kg

DRUGS (11)
  1. HUMIRA [Suspect]
     Indication: PSORIATIC ARTHROPATHY
     Route: 058
     Dates: start: 20110411
  2. OMEPRAZOLE [Concomitant]
     Indication: DYSPEPSIA
  3. ZOLPIDEM [Concomitant]
     Indication: INSOMNIA
  4. VENLAFAXINE [Concomitant]
     Indication: DEPRESSION
  5. ASPIRIN [Concomitant]
     Indication: PRODUCT USED FOR UNKNOWN INDICATION
  6. LISINOPRIL [Concomitant]
     Indication: HYPERTENSION
  7. METHOTREXATE [Concomitant]
     Indication: PRODUCT USED FOR UNKNOWN INDICATION
     Dosage: 8 TABLETS ONCE WEEKLY.
  8. VENLAFAXINE [Concomitant]
     Indication: ANXIETY
  9. NOVOLOG [Concomitant]
     Indication: TYPE 2 DIABETES MELLITUS
     Dosage: 100 UNITS DAILY VIA INSULIN PUMP
     Route: 050
  10. ATENOLOL [Concomitant]
     Indication: HYPERTENSION
  11. TRIAMTERENE AND HYDROCHLOROTHIAZIDE [Concomitant]
     Indication: HYPERTENSION
     Dosage: 37.5/25 MG DAILY

REACTIONS (3)
  - CHEST PAIN [None]
  - HYPERHIDROSIS [None]
  - DYSPNOEA [None]
